FAERS Safety Report 7532504-7 (Version None)
Quarter: 2011Q2

REPORT INFORMATION
  Report Type: 
  Country: None (occurrence: None)
  Receive Date: 20110608
  Receipt Date: 20110525
  Transmission Date: 20111010
  Serious: Yes (Hospitalization, Other)
  Sender: FDA-Public Use
  Company Number: PHHY2010JP80210

PATIENT
  Sex: Male

DRUGS (6)
  1. GLEEVEC [Suspect]
     Dosage: 400 MG,DAILY
     Route: 048
     Dates: start: 20110308
  2. GLEEVEC [Suspect]
     Dosage: 300 MG,DAILY
     Route: 048
     Dates: start: 20110412
  3. GLEEVEC [Suspect]
     Dosage: 600 MG,DAILY
     Route: 048
     Dates: start: 20090701, end: 20091007
  4. GLEEVEC [Suspect]
     Dosage: 600 MG,DAILY
     Route: 048
     Dates: start: 20091127
  5. GLEEVEC [Suspect]
     Dosage: 400 MG,DAILY
     Route: 048
     Dates: start: 20100608
  6. GLEEVEC [Suspect]
     Indication: GASTROINTESTINAL STROMAL TUMOUR
     Dosage: 400 MG,DAILY
     Route: 048
     Dates: start: 20080822

REACTIONS (11)
  - ABDOMINAL PAIN [None]
  - MELAENA [None]
  - GASTROINTESTINAL STROMAL TUMOUR [None]
  - PLEURAL EFFUSION [None]
  - GASTROINTESTINAL HAEMORRHAGE [None]
  - ASCITES [None]
  - PERITONITIS BACTERIAL [None]
  - NEOPLASM MALIGNANT [None]
  - HAEMATEMESIS [None]
  - PYREXIA [None]
  - BLOOD ALKALINE PHOSPHATASE INCREASED [None]
